FAERS Safety Report 6855197-0 (Version None)
Quarter: 2010Q3

REPORT INFORMATION
  Report Type: 
  Country: None (occurrence: None)
  Receive Date: 20100718
  Receipt Date: 20100708
  Transmission Date: 20110219
  Serious: Yes (Death)
  Sender: FDA-Public Use
  Company Number: US-MYLANLABS-2010S1011190

PATIENT
  Age: 8 Year
  Sex: Female
  Weight: 30 kg

DRUGS (4)
  1. CLARAVIS [Suspect]
     Indication: MEDULLOBLASTOMA
     Dates: start: 20100301, end: 20100528
  2. AMNESTEEM [Suspect]
     Indication: MEDULLOBLASTOMA
     Dates: start: 20100401, end: 20100528
  3. CHEMOTHERAPEUTICS [Suspect]
     Indication: MEDULLOBLASTOMA
     Dates: end: 20100528
  4. RADIATION THERAPY [Suspect]
     Indication: MEDULLOBLASTOMA
     Dates: start: 20091101, end: 20091201

REACTIONS (2)
  - DRUG INEFFECTIVE FOR UNAPPROVED INDICATION [None]
  - MEDULLOBLASTOMA [None]
